FAERS Safety Report 18515419 (Version 1)
Quarter: 2020Q4

REPORT INFORMATION
  Report Type: Spontaneous
  Country: GB (occurrence: GB)
  Receive Date: 20201118
  Receipt Date: 20201118
  Transmission Date: 20210114
  Serious: Yes (Other)
  Sender: FDA-Public Use
  Company Number: GB-ACCORD-208306

PATIENT
  Age: 84 Year
  Sex: Female
  Weight: 87 kg

DRUGS (10)
  1. ADCAL [Concomitant]
     Indication: BONE DISORDER
     Dates: start: 20200326
  2. APIXABAN [Suspect]
     Active Substance: APIXABAN
     Indication: THROMBOSIS
     Dates: start: 20200716, end: 20201006
  3. ATORVASTATIN [Concomitant]
     Active Substance: ATORVASTATIN
     Indication: BLOOD CHOLESTEROL INCREASED
     Dosage: AT NIGHT
     Dates: start: 20200326
  4. METOPROLOL. [Concomitant]
     Active Substance: METOPROLOL
     Dosage: 2 IN THE MORNING AND 2 AT NIGHT
     Dates: start: 20200713
  5. IBANDRONIC ACID. [Concomitant]
     Active Substance: IBANDRONIC ACID
     Dosage: SHOULD BE SWALLOWED W...
     Dates: start: 20200326
  6. MEBEVERINE [Concomitant]
     Active Substance: MEBEVERINE
     Dates: start: 20200713
  7. ESTRADIOL. [Concomitant]
     Active Substance: ESTRADIOL
     Dates: start: 20191113
  8. CARMELLOSE [Concomitant]
     Active Substance: CARBOXYMETHYLCELLULOSE
     Dosage: 1-2 DROPS AS DIRECTED
     Dates: start: 20200326
  9. SODIUM ALGINATE [Concomitant]
     Active Substance: SODIUM ALGINATE
     Indication: DYSPEPSIA
     Dates: start: 20200108
  10. LANSOPRAZOLE. [Concomitant]
     Active Substance: LANSOPRAZOLE
     Indication: GASTROOESOPHAGEAL REFLUX DISEASE
     Dates: start: 20200713

REACTIONS (2)
  - Visual impairment [Unknown]
  - Migraine [Recovered/Resolved]

NARRATIVE: CASE EVENT DATE: 20200720
